FAERS Safety Report 18156537 (Version 2)
Quarter: 2020Q3

REPORT INFORMATION
  Report Type: Spontaneous
  Country: US (occurrence: US)
  Receive Date: 20200817
  Receipt Date: 20200819
  Transmission Date: 20201103
  Serious: No
  Sender: FDA-Public Use
  Company Number: US-PFIZER INC-2020316434

PATIENT
  Age: 59 Year
  Sex: Female

DRUGS (8)
  1. GABAPENTIN. [Suspect]
     Active Substance: GABAPENTIN
     Dosage: 400 MG, TWO TO THREE TIMES PER DAY
     Dates: start: 2019
  2. TRAMADOL. [Concomitant]
     Active Substance: TRAMADOL
     Indication: SCOLIOSIS
     Dosage: UNK
  3. GABAPENTIN. [Suspect]
     Active Substance: GABAPENTIN
     Dosage: 300 MG
     Dates: start: 202003, end: 2020
  4. TRAMADOL. [Concomitant]
     Active Substance: TRAMADOL
     Indication: COMPRESSION FRACTURE
  5. GABAPENTIN. [Suspect]
     Active Substance: GABAPENTIN
     Dosage: 200 MG, TWO TO THREE TIMES PER DAY
     Dates: start: 2020, end: 2020
  6. GABAPENTIN. [Suspect]
     Active Substance: GABAPENTIN
     Dosage: 200 MG, 1X/DAY
     Dates: start: 2020, end: 202006
  7. LEVOTHYROXINE. [Concomitant]
     Active Substance: LEVOTHYROXINE
     Dosage: UNK, DAILY (TAKES THAT IN THE MIDDLE OF THE NIGHT)
  8. GABAPENTIN. [Suspect]
     Active Substance: GABAPENTIN
     Indication: NERVE INJURY
     Dosage: 800 MG THREE OR FOUR TIMES PER DAY
     Dates: start: 2018

REACTIONS (2)
  - Off label use [Unknown]
  - Drug ineffective for unapproved indication [Unknown]

NARRATIVE: CASE EVENT DATE: 2018
